FAERS Safety Report 7654243-4 (Version None)
Quarter: 2011Q3

REPORT INFORMATION
  Report Type: 
  Country: None (occurrence: None)
  Receive Date: 20110802
  Receipt Date: 20110802
  Transmission Date: 20111222
  Serious: Yes (Other)
  Sender: FDA-Public Use
  Company Number: None

PATIENT
  Sex: Male
  Weight: 81.6475 kg

DRUGS (4)
  1. BISMUTH SUBSALICYLATE [Concomitant]
  2. ADVAIR DISKUS 100/50 [Suspect]
     Indication: CHRONIC OBSTRUCTIVE PULMONARY DISEASE
     Dosage: 100/50 BID ORAL 047
     Route: 048
     Dates: start: 20060525
  3. MYLANTA [Concomitant]
  4. TYLENOL-500 [Concomitant]

REACTIONS (7)
  - SPEECH DISORDER [None]
  - CHEST PAIN [None]
  - VISION BLURRED [None]
  - OROPHARYNGEAL PAIN [None]
  - PAIN IN EXTREMITY [None]
  - HEADACHE [None]
  - NECK PAIN [None]
